FAERS Safety Report 10183952 (Version 1)
Quarter: 2014Q2

REPORT INFORMATION
  Report Type: Spontaneous
  Country: US (occurrence: US)
  Receive Date: 20140520
  Receipt Date: 20140520
  Transmission Date: 20141212
  Serious: Yes (Other)
  Sender: FDA-Public Use
  Company Number: US-GLAXOSMITHKLINE-A1073156A

PATIENT
  Sex: Female

DRUGS (7)
  1. ADVAIR [Suspect]
     Indication: PRODUCT USED FOR UNKNOWN INDICATION
     Route: 055
  2. DIFLUCAN [Suspect]
     Indication: CANDIDA INFECTION
     Route: 065
  3. NYSTATIN [Suspect]
     Indication: CANDIDA INFECTION
     Route: 065
  4. Z-PAK [Suspect]
     Indication: CANDIDA INFECTION
     Route: 065
  5. PREDNISONE [Suspect]
     Indication: CANDIDA INFECTION
     Route: 065
  6. ACYCLOVIR [Suspect]
     Indication: CANDIDA INFECTION
     Route: 065
  7. PROBIOTICS [Concomitant]

REACTIONS (16)
  - Narcolepsy [Not Recovered/Not Resolved]
  - Hypothalamo-pituitary disorder [Not Recovered/Not Resolved]
  - Sjogren^s syndrome [Not Recovered/Not Resolved]
  - Asthma [Unknown]
  - Oral candidiasis [Unknown]
  - Drug hypersensitivity [Unknown]
  - Malaise [Not Recovered/Not Resolved]
  - Dysphagia [Unknown]
  - Feeling abnormal [Unknown]
  - Wheezing [Unknown]
  - Dry mouth [Unknown]
  - Fatigue [Not Recovered/Not Resolved]
  - Emotional distress [Not Recovered/Not Resolved]
  - Vulvovaginal mycotic infection [Unknown]
  - Oropharyngeal candidiasis [Unknown]
  - Drug ineffective [Unknown]
